FAERS Safety Report 18398834 (Version 6)
Quarter: 2020Q4

REPORT INFORMATION
  Report Type: Spontaneous
  Country: GB (occurrence: GB)
  Receive Date: 20201019
  Receipt Date: 20201222
  Transmission Date: 20210114
  Serious: Yes (Hospitalization, Other)
  Sender: FDA-Public Use
  Company Number: GB-MYLANLABS-2020M1087841

PATIENT
  Age: 30 Year
  Sex: Male

DRUGS (3)
  1. CLOZARIL [Suspect]
     Active Substance: CLOZAPINE
     Dosage: UNK
     Route: 048
     Dates: start: 20201028
  2. CLOZARIL [Suspect]
     Active Substance: CLOZAPINE
     Indication: SCHIZOPHRENIA
     Dosage: UNK
     Route: 048
     Dates: start: 20201026
  3. CLOZARIL [Suspect]
     Active Substance: CLOZAPINE
     Indication: SCHIZOAFFECTIVE DISORDER
     Dosage: UNK
     Dates: start: 201811, end: 201902

REACTIONS (15)
  - Illness [Unknown]
  - White blood cell count increased [Unknown]
  - Platelet count increased [Unknown]
  - Neutropenic sepsis [Unknown]
  - White blood cell count decreased [Not Recovered/Not Resolved]
  - Mental impairment [Unknown]
  - Off label use [Unknown]
  - Delusion of grandeur [Unknown]
  - Neutrophil count decreased [Not Recovered/Not Resolved]
  - Psychosexual disorder [Unknown]
  - Circadian rhythm sleep disorder [Unknown]
  - Body temperature increased [Unknown]
  - Loss of personal independence in daily activities [Unknown]
  - Agitation [Unknown]
  - Neutrophil count increased [Unknown]

NARRATIVE: CASE EVENT DATE: 201811
